FAERS Safety Report 7955426-6 (Version None)
Quarter: 2011Q4

REPORT INFORMATION
  Report Type: 
  Country: None (occurrence: None)
  Receive Date: 20111202
  Receipt Date: 20111128
  Transmission Date: 20120403
  Serious: Yes (Other)
  Sender: FDA-Public Use
  Company Number: PT-ABBOTT-11P-130-0849783-00

PATIENT
  Sex: Female
  Weight: 58 kg

DRUGS (3)
  1. MESALAMINE [Concomitant]
     Indication: CROHN'S DISEASE
     Route: 048
  2. IMURAN [Interacting]
     Indication: CROHN'S DISEASE
     Route: 048
     Dates: start: 20090101
  3. HUMIRA [Suspect]
     Indication: CROHN'S DISEASE
     Route: 058
     Dates: start: 20110531

REACTIONS (3)
  - ALOPECIA [None]
  - DRUG INTERACTION [None]
  - INFLUENZA LIKE ILLNESS [None]
